FAERS Safety Report 6292759-6 (Version None)
Quarter: 2009Q3

REPORT INFORMATION
  Report Type: 
  Country: None (occurrence: None)
  Receive Date: 20090731
  Receipt Date: 20090723
  Transmission Date: 20100115
  Serious: Yes (Hospitalization)
  Sender: FDA-Public Use
  Company Number: B0585336A

PATIENT
  Sex: Male

DRUGS (3)
  1. ARIXTRA [Suspect]
     Indication: PROPHYLAXIS
     Dosage: 2.5ML PER DAY
     Route: 058
     Dates: start: 20090324
  2. RIFAMPICIN [Suspect]
     Indication: INFECTION
     Dosage: 600MG THREE TIMES PER DAY
     Route: 048
     Dates: start: 20090324, end: 20090519
  3. TAVANIC [Suspect]
     Indication: INFECTION
     Dosage: 1UNIT PER DAY
     Route: 048
     Dates: start: 20090324

REACTIONS (3)
  - INCORRECT DRUG ADMINISTRATION DURATION [None]
  - LYMPHOPENIA [None]
  - THROMBOCYTOPENIA [None]
